FAERS Safety Report 22217318 (Version 1)
Quarter: 2023Q2

REPORT INFORMATION
  Report Type: Spontaneous
  Country: US (occurrence: US)
  Receive Date: 20230417
  Receipt Date: 20230417
  Transmission Date: 20230721
  Serious: No
  Sender: FDA-Public Use
  Company Number: US-BRISTOL-MYERS SQUIBB COMPANY-2023-053178

PATIENT
  Age: 64 Year
  Sex: Male
  Weight: 70.31 kg

DRUGS (1)
  1. REVLIMID [Suspect]
     Active Substance: LENALIDOMIDE
     Indication: Plasma cell myeloma
     Dosage: 1-14 Q21 DAYS
     Route: 048
     Dates: start: 20220527

REACTIONS (2)
  - Anaemia [Not Recovered/Not Resolved]
  - Off label use [Unknown]
